FAERS Safety Report 5548303-1 (Version None)
Quarter: 2007Q4

REPORT INFORMATION
  Report Type: 
  Country: None (occurrence: None)
  Receive Date: 20071206
  Receipt Date: 20071119
  Transmission Date: 20080405
  Serious: Yes (Hospitalization)
  Sender: FDA-Public Use
  Company Number: 2007RL000501

PATIENT
  Sex: Female

DRUGS (9)
  1. PROPAFENONE HCL [Suspect]
     Indication: TACHYCARDIA
     Dosage: 300 MG; QD; PO
     Route: 048
     Dates: start: 20070901, end: 20070901
  2. ACETYLSALICYLIC ACID SRT [Concomitant]
  3. SIMVASTATIN [Concomitant]
  4. INSULIN [Concomitant]
  5. GLYBURIDE [Concomitant]
  6. METFORMIN HCL [Concomitant]
  7. ISOSORBIDE MONONITRATE [Concomitant]
  8. VERAPAMIL [Concomitant]
  9. AMIODARONE [Concomitant]

REACTIONS (4)
  - CARDIOGENIC SHOCK [None]
  - ELECTROCARDIOGRAM QRS COMPLEX SHORTENED [None]
  - PALPITATIONS [None]
  - TACHYCARDIA [None]
